FAERS Safety Report 18388511 (Version 4)
Quarter: 2020Q4

REPORT INFORMATION
  Report Type: Report from Study
  Country: US (occurrence: US)
  Receive Date: 20201015
  Receipt Date: 20201203
  Transmission Date: 20210114
  Serious: No
  Sender: FDA-Public Use
  Company Number: NVSC2020US272595

PATIENT
  Sex: Male

DRUGS (1)
  1. COSENTYX [Suspect]
     Active Substance: SECUKINUMAB
     Indication: PSORIASIS
     Dosage: 300 MG, QW
     Route: 058
     Dates: start: 20200829, end: 202009

REACTIONS (3)
  - Candida infection [Not Recovered/Not Resolved]
  - Blister [Not Recovered/Not Resolved]
  - Psoriasis [Not Recovered/Not Resolved]
